FAERS Safety Report 9048572 (Version 1)
Quarter: 2013Q1

REPORT INFORMATION
  Report Type: Spontaneous
  Country: US (occurrence: None)
  Receive Date: 20130130
  Receipt Date: 20130130
  Transmission Date: 20140127
  Serious: Yes (Hospitalization)
  Sender: FDA-Public Use
  Company Number: None

PATIENT
  Age: 58 Year
  Sex: Female
  Weight: 36 kg

DRUGS (13)
  1. WARFARIN [Suspect]
     Indication: PULMONARY EMBOLISM
     Route: 048
  2. PLAVIX [Suspect]
     Indication: PULMONARY EMBOLISM
     Dosage: CHRONIC
     Route: 048
  3. HEPARIN [Suspect]
  4. COREG [Concomitant]
  5. DIAZEPAM [Concomitant]
  6. EPOGEN [Concomitant]
  7. ATARAX [Concomitant]
  8. IRON [Concomitant]
  9. OXYCODONE [Concomitant]
  10. REMERON [Concomitant]
  11. RENAGEL [Concomitant]
  12. SENSIPAR [Concomitant]
  13. THIAMINE [Concomitant]

REACTIONS (5)
  - Dyspnoea [None]
  - International normalised ratio increased [None]
  - Melaena [None]
  - Haemoglobin decreased [None]
  - Ejection fraction decreased [None]
